FAERS Safety Report 8951112 (Version 2)
Quarter: 2013Q3

REPORT INFORMATION
  Report Type: Report from Study
  Country: JP (occurrence: JP)
  Receive Date: 20121207
  Receipt Date: 20130715
  Transmission Date: 20140515
  Serious: Yes (Hospitalization, Other)
  Sender: FDA-Public Use
  Company Number: JP-009507513-2012SP014454

PATIENT
  Age: 67 Year
  Sex: Female
  Weight: 59 kg

DRUGS (21)
  1. PEGINTRON [Suspect]
     Indication: CHRONIC HEPATITIS C
     Dosage: 1.5 MICROGRAM PER KILOGRAM, QW
     Route: 058
     Dates: start: 20120124, end: 20120224
  2. PEGINTRON [Suspect]
     Dosage: 1.1 MICROGRAM PER KILOGRAM, QW
     Route: 058
     Dates: start: 20120326, end: 20120621
  3. PEGINTRON [Suspect]
     Dosage: 1.4 MICROGRAM PER KILOGRAM, QW
     Dates: start: 20120622
  4. REBETOL [Suspect]
     Indication: CHRONIC HEPATITIS C
     Dosage: 600 MG, QD
     Route: 048
     Dates: start: 20120124, end: 20120207
  5. REBETOL [Suspect]
     Dosage: 400 MG, QD
     Route: 048
     Dates: start: 20120208, end: 20120220
  6. REBETOL [Suspect]
     Dosage: 200 MG, QD
     Route: 048
     Dates: start: 20120221, end: 20120301
  7. REBETOL [Suspect]
     Dosage: 200 MG, QD
     Route: 048
     Dates: start: 20120326, end: 20120404
  8. REBETOL [Suspect]
     Dosage: 400 MG, PER DAY, 200 MG PER DAY ALTERNATELY
     Route: 048
     Dates: start: 20120405, end: 20120419
  9. REBETOL [Suspect]
     Dosage: 400 MG, QD
     Route: 048
     Dates: start: 20120420, end: 20120614
  10. REBETOL [Suspect]
     Dosage: 600 MG, QD
     Route: 048
     Dates: start: 20120615
  11. TELAVIC [Suspect]
     Indication: CHRONIC HEPATITIS C
     Dosage: 2250 MG, QD
     Route: 048
     Dates: start: 20120124, end: 20120130
  12. TELAVIC [Suspect]
     Dosage: 1500 MG, QD
     Route: 048
     Dates: start: 20120131, end: 20120220
  13. TELAVIC [Suspect]
     Dosage: 1000 MG, QD
     Route: 048
     Dates: start: 20120221, end: 20120301
  14. TELAVIC [Suspect]
     Dosage: 1250 MG, QD
     Route: 048
     Dates: start: 20120326, end: 20120404
  15. TELAVIC [Suspect]
     Dosage: 250 MG PER DAY AND 500 MG PER DAY ON ALTERNATE DAYS
     Route: 048
     Dates: start: 20120405, end: 20120501
  16. MAGMITT [Concomitant]
     Indication: CONSTIPATION
     Dosage: 1980 MG, QD
     Route: 048
     Dates: start: 20120125
  17. VOLTAREN [Concomitant]
     Indication: PYREXIA
     Dosage: PER DAY AS NEEDED
     Route: 054
     Dates: start: 20120124
  18. NAUZELIN [Concomitant]
     Indication: NAUSEA
     Dosage: 3 DF, QD
     Route: 048
     Dates: start: 20120223, end: 20120327
  19. NAUZELIN [Concomitant]
     Dosage: 3.00 DF, ONCE
     Route: 048
  20. ALLEGRA [Concomitant]
     Indication: DRUG ERUPTION
     Dosage: 120 MG, QD
     Route: 048
  21. TOUGHMAC E [Concomitant]
     Indication: ABDOMINAL DISCOMFORT
     Dosage: 3 DF, QD
     Route: 048

REACTIONS (2)
  - Decreased appetite [Recovered/Resolved]
  - Anaemia [Recovered/Resolved]
